FAERS Safety Report 5197642-5 (Version None)
Quarter: 2006Q4

REPORT INFORMATION
  Report Type: 
  Country: None (occurrence: None)
  Receive Date: 20061228
  Receipt Date: 20061218
  Transmission Date: 20070319
  Serious: Yes (Death, Life-Threatening)
  Sender: FDA-Public Use
  Company Number: 062-20785-06060539

PATIENT
  Age: 57 Year
  Sex: Male

DRUGS (3)
  1. THALIDOMIDE [Suspect]
     Indication: BLOOD ALKALINE PHOSPHATASE
     Dosage: 100-400 MG, DAILY, ORAL (SEE IMAGE)
     Route: 048
     Dates: start: 20060220, end: 20060507
  2. THALIDOMIDE [Suspect]
     Indication: BLOOD ALKALINE PHOSPHATASE
     Dosage: 100-400 MG, DAILY, ORAL (SEE IMAGE)
     Route: 048
     Dates: start: 20060508, end: 20060612
  3. RILUTEK [Concomitant]

REACTIONS (13)
  - ARRHYTHMIA [None]
  - ARTERIOSCLEROSIS [None]
  - BRADYCARDIA [None]
  - CARDIAC FAILURE [None]
  - COR PULMONALE [None]
  - CORONARY ARTERY STENOSIS [None]
  - DISEASE PROGRESSION [None]
  - EMPHYSEMA [None]
  - HYPOVENTILATION [None]
  - ISCHAEMIA [None]
  - SHOCK [None]
  - SUDDEN CARDIAC DEATH [None]
  - THROMBOSIS [None]
